FAERS Safety Report 10706482 (Version 1)
Quarter: 2015Q1

REPORT INFORMATION
  Report Type: Spontaneous
  Country: AU (occurrence: AU)
  Receive Date: 20150113
  Receipt Date: 20150113
  Transmission Date: 20150721
  Serious: Yes (Other)
  Sender: FDA-Public Use
  Company Number: AU-ASTRAZENECA-2015SE02945

PATIENT
  Sex: Female

DRUGS (4)
  1. SEROQUEL [Suspect]
     Active Substance: QUETIAPINE FUMARATE
     Route: 048
  2. SAPHRIS [Concomitant]
     Active Substance: ASENAPINE MALEATE
     Route: 060
  3. SEROQUEL [Suspect]
     Active Substance: QUETIAPINE FUMARATE
     Route: 048
  4. UNSPECIFIED MOOD STABILIZER [Concomitant]

REACTIONS (4)
  - Tachyphrenia [Unknown]
  - Suicidal ideation [Unknown]
  - Intentional product use issue [Unknown]
  - Weight increased [Unknown]
